FAERS Safety Report 6191377-8 (Version None)
Quarter: 2009Q2

REPORT INFORMATION
  Report Type: 
  Country: None (occurrence: None)
  Receive Date: 20090515
  Receipt Date: 20070503
  Transmission Date: 20091009
  Serious: Yes (Hospitalization, Other)
  Sender: FDA-Public Use
  Company Number: US-ASTRAZENECA-2006UW21037

PATIENT
  Age: 13854 Day
  Sex: Male
  Weight: 86.2 kg

DRUGS (24)
  1. SEROQUEL [Suspect]
     Indication: PARANOIA
     Route: 048
     Dates: start: 19990101, end: 19990501
  2. SEROQUEL [Suspect]
     Indication: DELUSION
     Route: 048
     Dates: start: 19990101, end: 19990501
  3. SEROQUEL [Suspect]
     Indication: DEPRESSION
     Route: 048
     Dates: start: 19990101, end: 19990501
  4. SEROQUEL [Suspect]
     Indication: SUICIDAL BEHAVIOUR
     Route: 048
     Dates: start: 19990101, end: 19990501
  5. SEROQUEL [Suspect]
     Indication: HALLUCINATION, AUDITORY
     Route: 048
     Dates: start: 19990101, end: 19990501
  6. SEROQUEL [Suspect]
     Indication: ANHEDONIA
     Route: 048
     Dates: start: 19990101, end: 19990501
  7. SEROQUEL [Suspect]
     Dosage: 50-200 MG
     Route: 048
     Dates: start: 19980203
  8. SEROQUEL [Suspect]
     Dosage: 50-200 MG
     Route: 048
     Dates: start: 19980203
  9. SEROQUEL [Suspect]
     Dosage: 50-200 MG
     Route: 048
     Dates: start: 19980203
  10. SEROQUEL [Suspect]
     Dosage: 50-200 MG
     Route: 048
     Dates: start: 19980203
  11. SEROQUEL [Suspect]
     Dosage: 50-200 MG
     Route: 048
     Dates: start: 19980203
  12. SEROQUEL [Suspect]
     Dosage: 50-200 MG
     Route: 048
     Dates: start: 19980203
  13. HALDOL [Concomitant]
     Route: 065
     Dates: start: 19950101
  14. RISPERDAL [Concomitant]
     Route: 065
     Dates: start: 20010101
  15. TIAZAC [Concomitant]
     Route: 048
  16. ACCUPRIL [Concomitant]
     Dosage: 40 MG-400 MG
     Route: 048
  17. PROZAC [Concomitant]
     Route: 048
  18. CLONIDINE [Concomitant]
     Dosage: 0.1 MG-0.3 MG
     Route: 048
  19. THIAMINE HCL [Concomitant]
     Route: 048
  20. CARDIZEM [Concomitant]
     Indication: BLOOD PRESSURE
     Dosage: 180 MG-360 MG
     Route: 048
  21. LORAZEPAM [Concomitant]
     Route: 048
  22. FLUOXETINE HCL [Concomitant]
     Dosage: 10 MG-40 MG
     Route: 048
  23. CELEXA [Concomitant]
     Indication: DEPRESSION
     Dosage: 20 MG-40 MG
     Route: 048
  24. ACETAMINOPHEN [Concomitant]
     Dosage: 325 MG-650 MG
     Route: 048

REACTIONS (21)
  - ABSCESS LIMB [None]
  - ALCOHOL ABUSE [None]
  - BRONCHITIS [None]
  - CARDIAC FAILURE CHRONIC [None]
  - CHEST PAIN [None]
  - DIABETES MELLITUS [None]
  - DIVERTICULUM [None]
  - DRUG DEPENDENCE [None]
  - ECZEMA [None]
  - GASTROINTESTINAL HAEMORRHAGE [None]
  - HEADACHE [None]
  - HYPERTENSIVE HEART DISEASE [None]
  - HYPOKALAEMIA [None]
  - MELAENA [None]
  - MICROCYTIC ANAEMIA [None]
  - POLYSUBSTANCE DEPENDENCE [None]
  - RENAL FAILURE CHRONIC [None]
  - SCHIZOAFFECTIVE DISORDER [None]
  - SUICIDAL IDEATION [None]
  - VERTIGO POSITIONAL [None]
  - VISION BLURRED [None]
